FAERS Safety Report 8293063 (Version 4)
Quarter: 2013Q3

REPORT INFORMATION
  Report Type: Report from Study
  Country: NL (occurrence: NL)
  Receive Date: 20111215
  Receipt Date: 20130924
  Transmission Date: 20140515
  Serious: Yes (Hospitalization)
  Sender: FDA-Public Use
  Company Number: NL-MEDIMMUNE-MEDI-0014102

PATIENT
  Age: 0 Year
  Sex: Female
  Weight: 4.2 kg

DRUGS (7)
  1. SYNAGIS [Suspect]
     Indication: PREMATURE BABY
     Route: 030
     Dates: start: 20111003, end: 20111003
  2. SYNAGIS [Suspect]
     Indication: PREMATURE BABY
     Route: 030
     Dates: start: 20111102, end: 20111102
  3. SYNAGIS [Suspect]
     Indication: PREMATURE BABY
     Route: 030
     Dates: start: 20111130, end: 20111130
  4. SYNAGIS [Suspect]
     Indication: PREMATURE BABY
     Route: 030
  5. LACTULOSE [Concomitant]
     Route: 065
     Dates: start: 2011
  6. DOMPERIDONE MALEATE [Concomitant]
     Route: 065
     Dates: start: 2011
  7. RANITIDINE [Concomitant]
     Dates: start: 2011

REACTIONS (3)
  - Dyspnoea [Recovered/Resolved]
  - Choking [Recovered/Resolved]
  - Gastrooesophageal reflux disease [Unknown]
